FAERS Safety Report 23758106 (Version 1)
Quarter: 2024Q2

REPORT INFORMATION
  Report Type: Spontaneous
  Country: US (occurrence: US)
  Receive Date: 20240418
  Receipt Date: 20240418
  Transmission Date: 20240716
  Serious: Yes (Other)
  Sender: FDA-Public Use
  Company Number: US-SANOFI-02011593

PATIENT
  Sex: Male

DRUGS (2)
  1. ENJAYMO [Suspect]
     Active Substance: SUTIMLIMAB-JOME
     Indication: Cold type haemolytic anaemia
     Dosage: UNK
     Route: 065
  2. ENJAYMO [Suspect]
     Active Substance: SUTIMLIMAB-JOME
     Indication: Haemolysis

REACTIONS (2)
  - Haemolysis [Unknown]
  - Product dose omission issue [Unknown]
